FAERS Safety Report 9632560 (Version 1)
Quarter: 2013Q4

REPORT INFORMATION
  Report Type: Report from Study
  Country: GB (occurrence: GB)
  Receive Date: 20131018
  Receipt Date: 20131018
  Transmission Date: 20140711
  Serious: Yes (Hospitalization, Other)
  Sender: FDA-Public Use
  Company Number: GB-US-EMD SERONO, INC.-7242533

PATIENT
  Age: 53 Year
  Sex: Female

DRUGS (1)
  1. REBIF [Suspect]
     Indication: PRODUCT USED FOR UNKNOWN INDICATION
     Route: 058
     Dates: start: 20130805

REACTIONS (5)
  - Back disorder [Not Recovered/Not Resolved]
  - Cyst [Unknown]
  - Malaise [Not Recovered/Not Resolved]
  - Intervertebral disc disorder [Unknown]
  - Influenza like illness [Not Recovered/Not Resolved]
